FAERS Safety Report 4886624-6 (Version None)
Quarter: 2005Q4

REPORT INFORMATION
  Report Type: 
  Country: None (occurrence: None)
  Receive Date: 20051220
  Receipt Date: 20050505
  Transmission Date: 20060501
  Serious: Yes (Other)
  Sender: FDA-Public Use
  Company Number: HQWYE627310MAY05

PATIENT
  Age: 45 Year
  Sex: Male
  Weight: 108.96 kg

DRUGS (2)
  1. EFFEXOR XR [Suspect]
     Dosage: 300 MG - FREQUENCY NOT SPECIFIED, ORAL
     Route: 048
     Dates: start: 20020101
  2. MIRTAZAPINE HYDROCHLORIDE [Concomitant]

REACTIONS (1)
  - CONVULSION [None]
